FAERS Safety Report 9231586 (Version 1)
Quarter: 2013Q2

REPORT INFORMATION
  Report Type: Spontaneous
  Country: US (occurrence: US)
  Receive Date: 20130415
  Receipt Date: 20130415
  Transmission Date: 20140414
  Serious: Yes (Other)
  Sender: FDA-Public Use
  Company Number: US-ALEXION PHARMACEUTICALS INC.-A201300779

PATIENT
  Age: 21 Year
  Sex: 0

DRUGS (3)
  1. SOLIRIS 300MG [Suspect]
     Indication: DOWLING-DEGOS DISEASE
     Dosage: 1500 MG, Q2W
     Route: 042
     Dates: start: 2009
  2. SOLIRIS 300MG [Suspect]
     Indication: OFF LABEL USE
  3. REMODULIN [Concomitant]
     Indication: PRODUCT USED FOR UNKNOWN INDICATION

REACTIONS (1)
  - Atrial fibrillation [Unknown]
